FAERS Safety Report 8252085-2 (Version None)
Quarter: 2012Q2

REPORT INFORMATION
  Report Type: 
  Country: None (occurrence: None)
  Receive Date: 20120402
  Receipt Date: 20110609
  Transmission Date: 20120825
  Serious: No
  Sender: FDA-Public Use
  Company Number: US-ABBOTT-11P-163-0731764-00

PATIENT
  Age: 34 Year
  Sex: Male

DRUGS (2)
  1. ANDROGEL [Suspect]
     Dosage: 5 GRAM DAILY
     Dates: start: 20100901, end: 20110101
  2. ANDROGEL [Suspect]
     Indication: BLOOD TESTOSTERONE DECREASED
     Dosage: 10 GRAM DAILY
     Dates: start: 20110101

REACTIONS (2)
  - BLOOD CHOLESTEROL INCREASED [None]
  - BLOOD GLUCOSE INCREASED [None]
